FAERS Safety Report 19107143 (Version 1)
Quarter: 2021Q2

REPORT INFORMATION
  Report Type: Spontaneous
  Country: US (occurrence: US)
  Receive Date: 20210408
  Receipt Date: 20210408
  Transmission Date: 20210717
  Serious: Yes (Other)
  Sender: FDA-Public Use
  Company Number: US-HIKMA PHARMACEUTICALS USA INC.-US-H14001-21-01636

PATIENT
  Sex: Female

DRUGS (2)
  1. PREDNISONE. [Suspect]
     Active Substance: PREDNISONE
     Indication: MULTIPLE SCLEROSIS
     Dosage: UNKNOWN
     Route: 065
  2. OCREVUS [Concomitant]
     Active Substance: OCRELIZUMAB
     Indication: PRODUCT USED FOR UNKNOWN INDICATION
     Dosage: UNKNOWN
     Route: 065

REACTIONS (10)
  - Gait disturbance [Unknown]
  - Pain [Unknown]
  - Multiple sclerosis [Unknown]
  - Muscle tightness [Unknown]
  - Hypoaesthesia [Unknown]
  - Asthenia [Unknown]
  - Swelling face [Unknown]
  - Eye disorder [Unknown]
  - Swelling [Unknown]
  - Drug ineffective [Unknown]
